FAERS Safety Report 7273745-6 (Version None)
Quarter: 2011Q1

REPORT INFORMATION
  Report Type: 
  Country: None (occurrence: None)
  Receive Date: 20110203
  Receipt Date: 20110128
  Transmission Date: 20110831
  Serious: Yes (Other)
  Sender: FDA-Public Use
  Company Number: SE-PFIZER INC-2011006632

PATIENT
  Age: 54 Year
  Sex: Female

DRUGS (2)
  1. ZOLPIDEM TARTRATE [Concomitant]
     Indication: SLEEP DISORDER
     Dosage: 10 MG, AS NEEDED
  2. CHAMPIX [Suspect]
     Indication: SMOKING CESSATION THERAPY
     Dosage: 0.5 MG, UNK
     Dates: start: 20101026, end: 20110107

REACTIONS (8)
  - DISTURBANCE IN ATTENTION [None]
  - PANIC DISORDER [None]
  - INSOMNIA [None]
  - DEPRESSION [None]
  - FATIGUE [None]
  - MENTAL DISORDER [None]
  - NAUSEA [None]
  - DYSPNOEA [None]
